FAERS Safety Report 5677342-5 (Version None)
Quarter: 2008Q1

REPORT INFORMATION
  Report Type: 
  Country: None (occurrence: None)
  Receive Date: 20080320
  Receipt Date: 20080320
  Transmission Date: 20080703
  Serious: Yes (Death)
  Sender: FDA-Public Use
  Company Number: None

PATIENT
  Age: 61 Year
  Sex: Male
  Weight: 71.2 kg

DRUGS (1)
  1. RAPAMYCIN 3 MG WYETH [Suspect]
     Indication: IMMUNOSUPPRESSION
     Dosage: 3 MG ONCE A DAY PO
     Route: 048
     Dates: start: 20080229, end: 20080316

REACTIONS (1)
  - SEPSIS [None]
